FAERS Safety Report 10711078 (Version 1)
Quarter: 2015Q1

REPORT INFORMATION
  Report Type: Spontaneous
  Country: CH (occurrence: CH)
  Receive Date: 20150114
  Receipt Date: 20150114
  Transmission Date: 20150721
  Serious: Yes (Hospitalization)
  Sender: FDA-Public Use
  Company Number: CH-B.I. PHARMACEUTICALS,INC./RIDGEFIELD-2015-BI-01207SI

PATIENT
  Age: 86 Year
  Sex: Male

DRUGS (8)
  1. VENTOLIN [Concomitant]
     Active Substance: ALBUTEROL SULFATE
     Indication: CHRONIC OBSTRUCTIVE PULMONARY DISEASE
     Dosage: FORMULATION: LIQUIDS; STRENGTH: 0.05%
     Route: 055
  2. METO ZEROK [Concomitant]
     Active Substance: METOPROLOL SUCCINATE
     Indication: PRODUCT USED FOR UNKNOWN INDICATION
     Dosage: 25 MG
     Route: 048
  3. PULMICORT TURBUHALER [Concomitant]
     Active Substance: BUDESONIDE
     Indication: CHRONIC OBSTRUCTIVE PULMONARY DISEASE
     Dosage: FORMULATION:LIQUIDS, INHALATIONS
     Route: 055
  4. BRICANYL [Suspect]
     Active Substance: TERBUTALINE SULFATE
     Indication: CHRONIC OBSTRUCTIVE PULMONARY DISEASE
     Dosage: 0.5 MG
     Route: 055
  5. FORADIL [Suspect]
     Active Substance: FORMOTEROL FUMARATE
     Indication: CHRONIC OBSTRUCTIVE PULMONARY DISEASE
     Dosage: FORMULATION: PRESSURISED AEROSOLS, CFC-FREE METERED-DOSE INHALERS
     Route: 055
  6. ASS CARDIO SPIRIG [Concomitant]
     Indication: PRODUCT USED FOR UNKNOWN INDICATION
     Dosage: FORMULATION: COATED TABLETS, ENTERIC
     Route: 048
  7. SPIRIVA [Suspect]
     Active Substance: TIOTROPIUM BROMIDE MONOHYDRATE
     Indication: CHRONIC OBSTRUCTIVE PULMONARY DISEASE
     Route: 055
  8. ATORVASTATIN SANDOZ [Concomitant]
     Active Substance: ATORVASTATIN
     Indication: HYPERCHOLESTEROLAEMIA
     Dosage: FORMULATION:COATED TABLETS, FILM
     Route: 048

REACTIONS (1)
  - Dyspnoea [Recovered/Resolved]

NARRATIVE: CASE EVENT DATE: 2014
